FAERS Safety Report 19711229 (Version 2)
Quarter: 2021Q3

REPORT INFORMATION
  Report Type: Spontaneous
  Country: FR (occurrence: FR)
  Receive Date: 20210817
  Receipt Date: 20210825
  Transmission Date: 20211014
  Serious: Yes (Disabling)
  Sender: FDA-Public Use
  Company Number: FR-MYLANLABS-2021M1051542

PATIENT
  Age: 61 Year
  Sex: Female
  Weight: 55 kg

DRUGS (2)
  1. SOTALOL. [Suspect]
     Active Substance: SOTALOL
     Indication: ATRIOVENTRICULAR NODE DYSFUNCTION
     Dosage: 320 MILLIGRAM
     Route: 048
     Dates: start: 2017, end: 2019
  2. SOTALOL. [Suspect]
     Active Substance: SOTALOL
     Dosage: 120 MILLIGRAM, QD
     Route: 048
     Dates: start: 2019

REACTIONS (6)
  - Product use in unapproved indication [Not Recovered/Not Resolved]
  - Camptocormia [Not Recovered/Not Resolved]
  - Antinuclear antibody positive [Not Recovered/Not Resolved]
  - Gait disturbance [Not Recovered/Not Resolved]
  - Hypertension [Not Recovered/Not Resolved]
  - Spinal deformity [Not Recovered/Not Resolved]

NARRATIVE: CASE EVENT DATE: 2017
